FAERS Safety Report 15596470 (Version 2)
Quarter: 2018Q4

REPORT INFORMATION
  Report Type: Spontaneous
  Country: DE (occurrence: DE)
  Receive Date: 20181107
  Receipt Date: 20181115
  Transmission Date: 20190205
  Serious: Yes (Other)
  Sender: FDA-Public Use
  Company Number: DE-BAYER-2018-034580

PATIENT
  Age: 32 Year
  Sex: Female
  Weight: 90 kg

DRUGS (1)
  1. MIRENA [Suspect]
     Active Substance: LEVONORGESTREL
     Indication: CONTRACEPTION
     Dosage: 20 MCG/24HR, CONT
     Route: 015
     Dates: start: 20150601

REACTIONS (7)
  - Device expulsion [None]
  - Pregnancy with contraceptive device [Recovered/Resolved]
  - Amenorrhoea [None]
  - Device physical property issue [None]
  - Device expulsion [None]
  - Drug ineffective [None]
  - Menorrhagia [None]

NARRATIVE: CASE EVENT DATE: 201707
